FAERS Safety Report 7781000-0 (Version None)
Quarter: 2011Q3

REPORT INFORMATION
  Report Type: 
  Country: None (occurrence: None)
  Receive Date: 20110927
  Receipt Date: 20110913
  Transmission Date: 20111222
  Serious: Yes (Other)
  Sender: FDA-Public Use
  Company Number: PHHY2011BR82558

PATIENT
  Sex: Female

DRUGS (2)
  1. FORMOTEROL FUMARATE [Suspect]
     Indication: DYSPNOEA
     Dosage: 1 DF, BID
  2. ACETAMINOPHEN [Concomitant]
     Dosage: 500 MG, UNK

REACTIONS (4)
  - FATIGUE [None]
  - DYSPNOEA [None]
  - WEIGHT INCREASED [None]
  - HEADACHE [None]
